FAERS Safety Report 7310442-2 (Version None)
Quarter: 2011Q1

REPORT INFORMATION
  Report Type: 
  Country: None (occurrence: None)
  Receive Date: 20110224
  Receipt Date: 20100819
  Transmission Date: 20110831
  Serious: No
  Sender: FDA-Public Use
  Company Number: US-BRISTOL-MYERS SQUIBB COMPANY-15251630

PATIENT
  Age: 61 Year
  Sex: Female

DRUGS (8)
  1. PRAVASTATIN [Concomitant]
  2. STARLIX [Concomitant]
  3. BENICAR [Concomitant]
  4. ZETIA [Concomitant]
  5. ATENOLOL [Concomitant]
  6. MAVIK [Concomitant]
  7. GLYBURIDE [Suspect]
  8. METFORMIN HCL [Suspect]

REACTIONS (1)
  - BLOOD CREATININE INCREASED [None]
